FAERS Safety Report 9560630 (Version 1)
Quarter: 2013Q3

REPORT INFORMATION
  Report Type: Spontaneous
  Country: US (occurrence: US)
  Receive Date: 20130927
  Receipt Date: 20130927
  Transmission Date: 20140515
  Serious: No
  Sender: FDA-Public Use
  Company Number: US-BIOGENIDEC-2013BI052783

PATIENT
  Age: 57 Year
  Sex: Male

DRUGS (4)
  1. TECFIDERA [Suspect]
     Indication: MULTIPLE SCLEROSIS
     Route: 048
     Dates: start: 20130603
  2. GABAPENTIN [Concomitant]
  3. PREDNISONE [Concomitant]
  4. VITAMIN B12 [Concomitant]

REACTIONS (5)
  - Ear discomfort [Recovered/Resolved]
  - Feeling cold [Recovered/Resolved]
  - Dizziness [Unknown]
  - Influenza like illness [Unknown]
  - Flushing [Recovered/Resolved]
